FAERS Safety Report 25275001 (Version 2)
Quarter: 2025Q2

REPORT INFORMATION
  Report Type: Spontaneous
  Country: US (occurrence: US)
  Receive Date: 20250506
  Receipt Date: 20250506
  Transmission Date: 20250716
  Serious: Yes (Death, Other)
  Sender: AMGEN
  Company Number: US-AMGEN-USASP2025085298

PATIENT
  Age: 3 Month
  Sex: Female

DRUGS (3)
  1. PREDNISONE [Suspect]
     Active Substance: PREDNISONE
     Indication: Partial seizures
     Route: 065
  2. PREDNISONE [Suspect]
     Active Substance: PREDNISONE
     Indication: Infantile spasms
  3. VIGABATRIN [Concomitant]
     Active Substance: VIGABATRIN
     Route: 065

REACTIONS (4)
  - Cardiac arrest [Fatal]
  - Infantile spasms [Unknown]
  - Drug ineffective for unapproved indication [Unknown]
  - Off label use [Unknown]
